FAERS Safety Report 7211121-2 (Version None)
Quarter: 2010Q4

REPORT INFORMATION
  Report Type: 
  Country: None (occurrence: None)
  Receive Date: 20101223
  Receipt Date: 20101213
  Transmission Date: 20110411
  Serious: Yes (Life-Threatening, Hospitalization)
  Sender: FDA-Public Use
  Company Number: 2010P1003314

PATIENT
  Age: 55 Year
  Sex: Male

DRUGS (13)
  1. FENTANYL [Suspect]
     Indication: PAIN
     Dosage: 25-350 MCG; QH; IV
     Route: 042
  2. PROPOFOL [Suspect]
     Dosage: 20 MG; QH;
  3. DILTIAZEM [Suspect]
     Dosage: 15 MG; QH;
  4. CHLORPROMAZINE [Concomitant]
  5. DIGOXIN [Concomitant]
  6. DOCUSATE [Concomitant]
  7. FUROSEMIDE [Concomitant]
  8. HEPARIN [Concomitant]
  9. IPRATROPIUM BROMIDE [Concomitant]
  10. LEVALBUTEROL HCL [Concomitant]
  11. METOPROLOL [Concomitant]
  12. PIPERACILLIN AND TAZOBACTAM [Concomitant]
  13. TOBRAMYCIN [Concomitant]

REACTIONS (20)
  - ABDOMINAL PAIN [None]
  - ASCITES [None]
  - BACK PAIN [None]
  - BLOOD ALBUMIN DECREASED [None]
  - BLOOD CREATINE INCREASED [None]
  - BLOOD GLUCOSE INCREASED [None]
  - BLOOD PRESSURE INCREASED [None]
  - BLOOD UREA INCREASED [None]
  - CHEST PAIN [None]
  - HAEMOGLOBIN DECREASED [None]
  - MYOCLONUS [None]
  - NEPHROLITHIASIS [None]
  - NEUROTOXICITY [None]
  - OBSTRUCTIVE UROPATHY [None]
  - PLEURAL EFFUSION [None]
  - POLYNEUROPATHY [None]
  - RALES [None]
  - RESPIRATORY RATE INCREASED [None]
  - URAEMIC ENCEPHALOPATHY [None]
  - WHITE BLOOD CELL COUNT INCREASED [None]
